FAERS Safety Report 4432067-9 (Version None)
Quarter: 2004Q3

REPORT INFORMATION
  Report Type: 
  Country: None (occurrence: None)
  Receive Date: 20040825
  Receipt Date: 20040817
  Transmission Date: 20050211
  Serious: Yes (Other)
  Sender: FDA-Public Use
  Company Number: PHEH2004US08938

PATIENT
  Age: 14 Year
  Sex: Female

DRUGS (2)
  1. TRILEPTAL [Suspect]
     Indication: AFFECTIVE DISORDER
     Dosage: 150 MG, QD
     Route: 048
     Dates: start: 20040201
  2. ORTHO TRI-CYCLEN [Suspect]
     Dosage: UNK, QD
     Route: 048
     Dates: start: 20040601

REACTIONS (2)
  - CLUSTER HEADACHE [None]
  - PAPILLOEDEMA [None]
